FAERS Safety Report 7529525-7 (Version None)
Quarter: 2011Q2

REPORT INFORMATION
  Report Type: 
  Country: None (occurrence: None)
  Receive Date: 20110607
  Receipt Date: 20110603
  Transmission Date: 20111010
  Serious: Yes (Other)
  Sender: FDA-Public Use
  Company Number: VE-PFIZER INC-2011095838

PATIENT
  Age: 78 Year
  Sex: Male

DRUGS (4)
  1. NORVASC [Suspect]
     Indication: HYPERTENSION
     Dosage: 5 MG, 2X/DAY
     Route: 048
  2. HUMULIN 70/30 [Concomitant]
     Indication: DIABETES MELLITUS
     Dosage: UNK
     Route: 058
  3. LIPITOR [Concomitant]
     Dosage: 40 MG, 1X/DAY
     Route: 048
     Dates: start: 19960101
  4. CADUET [Concomitant]
     Dosage: 5/40 MG, 1X/DAY
     Route: 048
     Dates: end: 20101201

REACTIONS (2)
  - PNEUMONIA [None]
  - RENAL FAILURE [None]
